FAERS Safety Report 19077851 (Version 1)
Quarter: 2021Q1

REPORT INFORMATION
  Report Type: Spontaneous
  Country: US (occurrence: US)
  Receive Date: 20210331
  Receipt Date: 20210331
  Transmission Date: 20210420
  Serious: Yes (Hospitalization)
  Sender: FDA-Public Use
  Company Number: None

PATIENT
  Age: 53 Year
  Sex: Male
  Weight: 148.9 kg

DRUGS (3)
  1. BAMLANIVIMAB. [Suspect]
     Active Substance: BAMLANIVIMAB
     Indication: COVID-19
     Dosage: ?          OTHER FREQUENCY:ON CALL;?
     Route: 042
     Dates: start: 20210330, end: 20210330
  2. ALLOPURINOL. [Concomitant]
     Active Substance: ALLOPURINOL
  3. INDOMETHACIN. [Concomitant]
     Active Substance: INDOMETHACIN

REACTIONS (4)
  - Chest pain [None]
  - Lip swelling [None]
  - Paraesthesia [None]
  - Swollen tongue [None]

NARRATIVE: CASE EVENT DATE: 20210330
